FAERS Safety Report 8569203-9 (Version None)
Quarter: 2012Q3

REPORT INFORMATION
  Report Type: 
  Country: None (occurrence: None)
  Receive Date: 20120803
  Receipt Date: 20120214
  Transmission Date: 20120928
  Serious: No
  Sender: FDA-Public Use
  Company Number: US-ABBOTT-12P-163-0905298-00

PATIENT
  Sex: Male
  Weight: 81.72 kg

DRUGS (6)
  1. LISINOPRIL [Concomitant]
     Indication: BLOOD PRESSURE
  2. ASACOL [Concomitant]
     Indication: COLITIS
  3. TESTOSTERONE ANDROGEL 1 % [Concomitant]
     Indication: BLOOD TESTOSTERONE DECREASED
     Dates: start: 20120101
  4. NIASPAN [Suspect]
     Indication: BLOOD CHOLESTEROL
     Route: 048
  5. HYTRIN [Concomitant]
     Indication: PROSTATIC DISORDER
  6. LIPITOR [Concomitant]
     Indication: BLOOD CHOLESTEROL

REACTIONS (1)
  - FLUSHING [None]
